FAERS Safety Report 10085145 (Version 2)
Quarter: 2015Q1

REPORT INFORMATION
  Report Type: Spontaneous
  Country: US (occurrence: None)
  Receive Date: 20140409
  Receipt Date: 20150331
  Transmission Date: 20150720
  Serious: Yes (Other)
  Sender: FDA-Public Use
  Company Number: SP07525

PATIENT
  Age: 71 Year
  Sex: Female
  Weight: 55.34 kg

DRUGS (1)
  1. OSMOPREP [Suspect]
     Active Substance: SODIUM PHOSPHATE, DIBASIC, ANHYDROUS\SODIUM PHOSPHATE, MONOBASIC, MONOHYDRATE
     Indication: BOWEL PREPARATION
     Route: 048
     Dates: start: 20111220

REACTIONS (2)
  - Acute kidney injury [None]
  - Nephropathy [None]

NARRATIVE: CASE EVENT DATE: 201112
